FAERS Safety Report 9174001 (Version 1)
Quarter: 2013Q1

REPORT INFORMATION
  Report Type: Spontaneous
  Country: BR (occurrence: BR)
  Receive Date: 20130320
  Receipt Date: 20130320
  Transmission Date: 20140127
  Serious: Yes (Hospitalization, Other)
  Sender: FDA-Public Use
  Company Number: PHHY2013BR026088

PATIENT
  Sex: Female

DRUGS (4)
  1. NEOTIAPIM [Suspect]
     Indication: DEPRESSION
     Dosage: 100 MG, QHS
     Route: 048
     Dates: start: 20130112
  2. NEOTIAPIM [Suspect]
     Indication: PANIC DISORDER
  3. FRONTAL [Suspect]
     Dosage: 1.5 DF, 1 DF AT NIGHT AND 0.5 DF IN MORNING
     Dates: start: 20130112
  4. ALENTHUS XR [Suspect]
     Dates: start: 20130112

REACTIONS (1)
  - Intentional drug misuse [Recovered/Resolved]
